FAERS Safety Report 7286790-1 (Version None)
Quarter: 2011Q1

REPORT INFORMATION
  Report Type: 
  Country: None (occurrence: None)
  Receive Date: 20110210
  Receipt Date: 20110127
  Transmission Date: 20110831
  Serious: No
  Sender: FDA-Public Use
  Company Number: US-ELI_LILLY_AND_COMPANY-US201102000188

PATIENT
  Age: 50 Year

DRUGS (3)
  1. CYMBALTA [Suspect]
     Dosage: 90 MG, UNK
  2. CYMBALTA [Suspect]
     Dosage: 60 MG, UNK
  3. CRESTOR [Concomitant]

REACTIONS (1)
  - HEPATIC ENZYME INCREASED [None]
